FAERS Safety Report 20478278 (Version 2)
Quarter: 2022Q1

REPORT INFORMATION
  Report Type: Spontaneous
  Country: US (occurrence: US)
  Receive Date: 20220216
  Receipt Date: 20220322
  Transmission Date: 20220423
  Serious: Yes (Other)
  Sender: FDA-Public Use
  Company Number: US-BION-010308

PATIENT
  Age: 59 Year
  Sex: Female

DRUGS (1)
  1. ALEVE [Suspect]
     Active Substance: NAPROXEN SODIUM
     Indication: Pain
     Dosage: EVERY DAY
     Route: 048

REACTIONS (3)
  - Foreign body in throat [Recovered/Resolved]
  - Incorrect product administration duration [Not Recovered/Not Resolved]
  - Product use complaint [Unknown]
